FAERS Safety Report 17858940 (Version 1)
Quarter: 2020Q2

REPORT INFORMATION
  Report Type: Spontaneous
  Country: US (occurrence: US)
  Receive Date: 20200604
  Receipt Date: 20200604
  Transmission Date: 20200714
  Serious: Yes (Death, Life-Threatening, Hospitalization, Other)
  Sender: FDA-Public Use
  Company Number: US-DRREDDYS-USA/USA/20/0123575

PATIENT
  Age: 59 Year
  Sex: Female

DRUGS (4)
  1. LOPINAVIR, RITONAVIR [Interacting]
     Active Substance: LOPINAVIR\RITONAVIR
     Indication: COVID-19
     Dosage: LOPINAVIR/RITONAVIR 400 MG TWICE DAILY FOR 5 DAYS
     Route: 065
     Dates: start: 202003, end: 202003
  2. TACROLIMUS. [Interacting]
     Active Substance: TACROLIMUS
     Dosage: 1 DOSE OF TACROLIMUS WAS GIVEN AT 60% DOSE REDUCTION
     Route: 065
     Dates: start: 202003
  3. MYCOPHENOLIC ACID. [Suspect]
     Active Substance: MYCOPHENOLIC ACID
     Indication: IMMUNOSUPPRESSANT DRUG THERAPY
     Dates: start: 2012
  4. TACROLIMUS. [Suspect]
     Active Substance: TACROLIMUS
     Indication: IMMUNOSUPPRESSANT DRUG THERAPY
     Route: 065
     Dates: start: 2012, end: 202003

REACTIONS (9)
  - Acute respiratory distress syndrome [Fatal]
  - Pneumocystis jirovecii pneumonia [Fatal]
  - Vasoplegia syndrome [Fatal]
  - Respiratory failure [Fatal]
  - COVID-19 [Fatal]
  - Multiple organ dysfunction syndrome [Fatal]
  - Renal failure [Fatal]
  - Immunosuppressant drug level increased [Unknown]
  - Drug interaction [Unknown]

NARRATIVE: CASE EVENT DATE: 2020
